FAERS Safety Report 5213554-2 (Version None)
Quarter: 2007Q1

REPORT INFORMATION
  Report Type: 
  Country: None (occurrence: None)
  Receive Date: 20070119
  Receipt Date: 20070109
  Transmission Date: 20070707
  Serious: Yes (Death)
  Sender: FDA-Public Use
  Company Number: US-PURDUE-USA_2006_0024662

PATIENT
  Age: 45 Year
  Sex: Male

DRUGS (4)
  1. UNKNOWN [Concomitant]
  2. DURAGESIC-100 [Suspect]
     Indication: DRUG USE FOR UNKNOWN INDICATION
     Dosage: UNK UNK, UNK
  3. COCAINE [Suspect]
     Indication: DRUG ABUSER
  4. OXYCONTIN [Suspect]
     Indication: DRUG USE FOR UNKNOWN INDICATION

REACTIONS (2)
  - MYOCARDIAL INFARCTION [None]
  - SUBSTANCE ABUSE [None]
